FAERS Safety Report 7126313-0 (Version None)
Quarter: 2010Q4

REPORT INFORMATION
  Report Type: 
  Country: None (occurrence: None)
  Receive Date: 20101129
  Receipt Date: 20100216
  Transmission Date: 20110411
  Serious: No
  Sender: FDA-Public Use
  Company Number: A0844732A

PATIENT

DRUGS (1)
  1. LANOXIN [Suspect]
     Route: 065

REACTIONS (2)
  - OESOPHAGEAL PAIN [None]
  - PRODUCT FRIABLE [None]
